FAERS Safety Report 7691000-7 (Version None)
Quarter: 2011Q3

REPORT INFORMATION
  Report Type: 
  Country: None (occurrence: None)
  Receive Date: 20110818
  Receipt Date: 20110815
  Transmission Date: 20111222
  Serious: Yes (Hospitalization, Other)
  Sender: FDA-Public Use
  Company Number: BR-SANOFI-AVENTIS-2011SA052444

PATIENT
  Age: 78 Year
  Sex: Male
  Weight: 72 kg

DRUGS (6)
  1. CARDIZEM [Concomitant]
  2. LANTUS [Suspect]
     Route: 058
     Dates: end: 20110801
  3. LANTUS [Suspect]
     Route: 058
     Dates: start: 20110815
  4. LASIX [Concomitant]
     Indication: HYPERTENSION
  5. LANTUS [Suspect]
     Route: 058
  6. LOSARTAN [Concomitant]

REACTIONS (6)
  - ERYSIPELAS [None]
  - PLEURAL EFFUSION [None]
  - OESOPHAGITIS [None]
  - HYPERGLYCAEMIA [None]
  - OESOPHAGEAL FISTULA [None]
  - COLITIS [None]
